FAERS Safety Report 12705006 (Version 1)
Quarter: 2016Q3

REPORT INFORMATION
  Report Type: Report from Study
  Country: CA (occurrence: CA)
  Receive Date: 20160831
  Receipt Date: 20160831
  Transmission Date: 20161109
  Serious: Yes (Other)
  Sender: FDA-Public Use
  Company Number: CA-ABBVIE-16P-028-1713476-00

PATIENT
  Age: 40 Year
  Sex: Female
  Weight: 70.37 kg

DRUGS (2)
  1. LUPRON DEPOT [Suspect]
     Active Substance: LEUPROLIDE ACETATE
     Indication: ENDOMETRIOSIS
     Route: 030
     Dates: start: 201506, end: 201607
  2. NAPROXEN. [Concomitant]
     Active Substance: NAPROXEN
     Indication: PRODUCT USED FOR UNKNOWN INDICATION
     Route: 065

REACTIONS (5)
  - Hot flush [Recovering/Resolving]
  - Mood swings [Recovered/Resolved]
  - Night sweats [Recovered/Resolved]
  - Hysterectomy [Unknown]
  - Endometriosis [Unknown]

NARRATIVE: CASE EVENT DATE: 201606
